FAERS Safety Report 13621758 (Version 1)
Quarter: 2017Q2

REPORT INFORMATION
  Report Type: Spontaneous
  Country: US (occurrence: US)
  Receive Date: 20170607
  Receipt Date: 20170607
  Transmission Date: 20170830
  Serious: No
  Sender: FDA-Public Use
  Company Number: US-ROCHE-1864539

PATIENT
  Sex: Female
  Weight: 59.02 kg

DRUGS (1)
  1. KLONOPIN [Suspect]
     Active Substance: CLONAZEPAM
     Indication: BRAIN OPERATION
     Dosage: UNKNOWN
     Route: 065
     Dates: start: 20161128

REACTIONS (2)
  - Anxiety [Unknown]
  - Insomnia [Unknown]
